FAERS Safety Report 7906837-6 (Version None)
Quarter: 2011Q4

REPORT INFORMATION
  Report Type: 
  Country: None (occurrence: None)
  Receive Date: 20111109
  Receipt Date: 20111109
  Transmission Date: 20120403
  Serious: Yes (Other)
  Sender: FDA-Public Use
  Company Number: None

PATIENT
  Age: 66 Year
  Sex: Female

DRUGS (15)
  1. AMPYRA [Suspect]
     Indication: MULTIPLE SCLEROSIS
     Dosage: 10MG Q12H BID ORALLY
     Route: 048
     Dates: start: 20110701, end: 20110801
  2. REBIF [Concomitant]
  3. ZOCOR [Concomitant]
  4. METHLYN [Concomitant]
  5. M.V.I. [Concomitant]
  6. MOBIC [Concomitant]
  7. FOSAMAX [Concomitant]
  8. TOFRANIL [Concomitant]
  9. FISH OIL [Concomitant]
  10. FLAXSEED OIL [Concomitant]
  11. ZANAFLEX [Concomitant]
  12. NEURONTIN [Concomitant]
  13. ATIVAN [Concomitant]
  14. ZESTRIL [Concomitant]
  15. OS-CAL [Concomitant]

REACTIONS (6)
  - JOINT SWELLING [None]
  - HEADACHE [None]
  - MYALGIA [None]
  - ARTHRITIS [None]
  - ARTHRALGIA [None]
  - OEDEMA PERIPHERAL [None]
